FAERS Safety Report 5523836-2 (Version None)
Quarter: 2007Q4

REPORT INFORMATION
  Report Type: 
  Country: None (occurrence: None)
  Receive Date: 20071121
  Receipt Date: 20071116
  Transmission Date: 20080405
  Serious: Yes (Death, Hospitalization, Other)
  Sender: FDA-Public Use
  Company Number: BR-ABBOTT-07P-020-0424989-00

PATIENT
  Age: 56 Year
  Sex: Female
  Weight: 70 kg

DRUGS (3)
  1. HUMIRA [Suspect]
     Indication: RHEUMATOID ARTHRITIS
     Route: 058
  2. HUMIRA [Suspect]
     Route: 058
  3. CORTICOID [Concomitant]
     Indication: RHEUMATOID ARTHRITIS

REACTIONS (8)
  - ALOPECIA [None]
  - COUGH [None]
  - IMMUNODEFICIENCY [None]
  - LUNG DISORDER [None]
  - PLEURAL EFFUSION [None]
  - PNEUMONIA [None]
  - WEIGHT DECREASED [None]
  - WOUND [None]
